FAERS Safety Report 5416575-X (Version None)
Quarter: 2007Q3

REPORT INFORMATION
  Report Type: 
  Country: None (occurrence: None)
  Receive Date: 20070816
  Receipt Date: 20070803
  Transmission Date: 20080115
  Serious: Yes (Hospitalization, Other)
  Sender: FDA-Public Use
  Company Number: AR-ELI_LILLY_AND_COMPANY-AR200707005126

PATIENT
  Age: 26 Year
  Sex: Male

DRUGS (12)
  1. ZYPREXA [Suspect]
     Indication: SCHIZOPHRENIA, PARANOID TYPE
     Dosage: 10 MG, DAILY (1/D)
     Route: 048
     Dates: start: 20041124, end: 20050308
  2. ZYPREXA [Suspect]
     Dosage: 10 MG, DAILY (1/D)
     Route: 048
     Dates: start: 20030808, end: 20031104
  3. ZYPREXA [Suspect]
     Dosage: 7.5 MG, DAILY (1/D)
     Dates: start: 20031105, end: 20040106
  4. ZYPREXA [Suspect]
     Dosage: 5 MG, DAILY (1/D)
     Dates: start: 20040107, end: 20041123
  5. ZYPREXA [Suspect]
     Dosage: 7.5 MG, DAILY (1/D)
     Dates: start: 20050309, end: 20050405
  6. ZYPREXA [Suspect]
     Dosage: 5 MG, DAILY (1/D)
     Dates: start: 20050406, end: 20050719
  7. ZYPREXA [Suspect]
     Dosage: 10 MG, DAILY (1/D)
     Route: 048
     Dates: start: 20050720, end: 20050816
  8. ZYPREXA [Suspect]
     Dosage: 15 MG, DAILY (1/D)
     Route: 048
     Dates: start: 20050817, end: 20060221
  9. ZYPREXA [Suspect]
     Dosage: 10 MG, DAILY (1/D)
     Route: 048
     Dates: start: 20060222, end: 20070203
  10. ZYPREXA [Suspect]
     Dosage: 15 MG, DAILY (1/D)
     Route: 048
     Dates: start: 20070204, end: 20070515
  11. ZYPREXA [Suspect]
     Dosage: 10 MG, DAILY (1/D)
     Route: 048
     Dates: start: 20070516
  12. VALIUM [Concomitant]
     Indication: ANXIETY
     Dosage: UNK UNK, AS NEEDED
     Dates: start: 20070101

REACTIONS (5)
  - CHOLELITHIASIS [None]
  - HYPERCHOLESTEROLAEMIA [None]
  - HYPERTRIGLYCERIDAEMIA [None]
  - PANCREATITIS ACUTE [None]
  - WEIGHT INCREASED [None]
